FAERS Safety Report 6527869-9 (Version None)
Quarter: 2009Q4

REPORT INFORMATION
  Report Type: 
  Country: None (occurrence: None)
  Receive Date: 20091231
  Receipt Date: 20091215
  Transmission Date: 20100525
  Serious: Yes (Other)
  Sender: FDA-Public Use
  Company Number: 460855

PATIENT
  Age: 72 Year
  Sex: Male

DRUGS (1)
  1. PACLITAXEL [Suspect]
     Indication: MALIGNANT MELANOMA
     Dosage: 144 MG, UNKNOWN, INTRAVENOUS
     Route: 042
     Dates: start: 20090122, end: 20090122

REACTIONS (4)
  - COUGH [None]
  - DIZZINESS [None]
  - DYSPNOEA [None]
  - PRURITUS [None]
